FAERS Safety Report 8457621-9 (Version None)
Quarter: 2012Q2

REPORT INFORMATION
  Report Type: 
  Country: None (occurrence: None)
  Receive Date: 20120622
  Receipt Date: 20120613
  Transmission Date: 20120825
  Serious: Yes (Hospitalization, Other)
  Sender: FDA-Public Use
  Company Number: US-ASTRAZENECA-2011SE41412

PATIENT
  Age: 54 Year
  Sex: Female
  Weight: 67.1 kg

DRUGS (23)
  1. ACETAZOLAMIDE [Concomitant]
     Indication: MENIERE'S DISEASE
     Dates: start: 20090716
  2. ACETAZOLAMIDE [Concomitant]
     Dates: start: 20110325
  3. CALCIUM CARBONATE [Concomitant]
  4. VIOXX [Concomitant]
  5. NEXIUM [Suspect]
     Indication: GASTROOESOPHAGEAL REFLUX DISEASE
     Route: 048
     Dates: start: 20010101, end: 20100101
  6. NEXIUM [Suspect]
     Route: 048
     Dates: start: 20090716
  7. LIBRAX [Concomitant]
     Dates: start: 20090716
  8. ANTIVERT [Concomitant]
  9. NEXIUM [Suspect]
     Route: 048
     Dates: start: 20110325
  10. QUESTRAN [Concomitant]
  11. PEPCID [Concomitant]
  12. BONIVA [Concomitant]
     Dosage: 150 MG ONE TABLET MONTHLY
  13. PATANASE [Concomitant]
     Dosage: SPRAY 2 TIMES BY NASAL ROUT 2 TIMES EVERY DAY
     Route: 045
     Dates: start: 20110325
  14. QUESTRAN [Concomitant]
     Dates: start: 20090716
  15. EVISTA [Concomitant]
     Dosage: 60 MG EVERY DAY BEFORE NOON
  16. WELCHOL [Concomitant]
     Indication: IRRITABLE BOWEL SYNDROME
  17. IMODIUM [Concomitant]
  18. NEXIUM [Suspect]
     Route: 048
     Dates: start: 20031202
  19. DEXILANT [Concomitant]
     Indication: GASTROOESOPHAGEAL REFLUX DISEASE
  20. LIBRAX [Concomitant]
     Indication: IRRITABLE BOWEL SYNDROME
     Dates: start: 20110325
  21. VALTREX [Concomitant]
     Indication: HERPES VIRUS INFECTION
  22. ZOLPIDEM [Concomitant]
     Indication: SLEEP DISORDER
  23. ZANTAC [Concomitant]

REACTIONS (12)
  - CALCIUM DEFICIENCY [None]
  - VITAMIN D DEFICIENCY [None]
  - PAIN [None]
  - BASAL CELL CARCINOMA [None]
  - ARTHRALGIA [None]
  - GALLBLADDER DISORDER [None]
  - OSTEOPOROSIS [None]
  - OSTEOPENIA [None]
  - SKIN CANCER [None]
  - EMOTIONAL DISTRESS [None]
  - PAIN IN EXTREMITY [None]
  - DEPRESSION [None]
